FAERS Safety Report 4886135-8 (Version None)
Quarter: 2006Q1

REPORT INFORMATION
  Report Type: 
  Country: None (occurrence: None)
  Receive Date: 20060120
  Receipt Date: 20010718
  Transmission Date: 20060701
  Serious: Yes (Congenital Anomaly)
  Sender: FDA-Public Use
  Company Number: US-GLAXOSMITHKLINE-A0156105A

PATIENT
  Sex: Female
  Weight: 3.2 kg

DRUGS (4)
  1. LAMICTAL [Suspect]
     Dosage: 600MG PER DAY
     Dates: end: 20001115
  2. OXYCONTIN [Concomitant]
  3. ASTHMA MEDICATION [Concomitant]
     Indication: ASTHMA
     Route: 055
  4. ORAL CONTRACEPTIVE [Concomitant]
     Indication: CONTRACEPTION

REACTIONS (3)
  - ATRIAL SEPTAL DEFECT [None]
  - CARDIAC DISORDER [None]
  - DRUG EXPOSURE DURING PREGNANCY [None]
